FAERS Safety Report 5191410-6 (Version None)
Quarter: 2006Q4

REPORT INFORMATION
  Report Type: 
  Country: None (occurrence: None)
  Receive Date: 20061226
  Receipt Date: 20061214
  Transmission Date: 20070319
  Serious: Yes (Death, Hospitalization)
  Sender: FDA-Public Use
  Company Number: FR-ROCHE-475555

PATIENT
  Age: 48 Year
  Sex: Male
  Weight: 72 kg

DRUGS (4)
  1. APRANAX 750 [Suspect]
     Route: 048
     Dates: start: 20061117, end: 20061124
  2. PREVISCAN [Interacting]
     Indication: DRUG USE FOR UNKNOWN INDICATION
     Route: 065
     Dates: end: 20061124
  3. ASPIRIN [Concomitant]
     Route: 048
     Dates: end: 20061124
  4. CIPROFLOXACIN [Concomitant]
     Route: 048
     Dates: start: 20061121, end: 20061124

REACTIONS (5)
  - CEREBELLAR HAEMORRHAGE [None]
  - DRUG INTERACTION [None]
  - INTERNATIONAL NORMALISED RATIO INCREASED [None]
  - PROTHROMBIN LEVEL INCREASED [None]
  - SUBARACHNOID HAEMORRHAGE [None]
